FAERS Safety Report 16008900 (Version 2)
Quarter: 2019Q4

REPORT INFORMATION
  Report Type: Spontaneous
  Country: US (occurrence: US)
  Receive Date: 20190226
  Receipt Date: 20191218
  Transmission Date: 20200122
  Serious: No
  Sender: FDA-Public Use
  Company Number: US-ACTELION-A-NJ2018-180504

PATIENT
  Age: 54 Year
  Sex: Female

DRUGS (14)
  1. ADCIRCA [Concomitant]
     Active Substance: TADALAFIL
  2. XANAX [Concomitant]
     Active Substance: ALPRAZOLAM
  3. POTASSIUM [Concomitant]
     Active Substance: POTASSIUM
  4. COLCRYS [Concomitant]
     Active Substance: COLCHICINE
  5. UPTRAVI [Suspect]
     Active Substance: SELEXIPAG
     Indication: PULMONARY ARTERIAL HYPERTENSION
     Route: 048
  6. LEVOTHYROXIN [Concomitant]
     Active Substance: LEVOTHYROXINE
  7. GABAPENTIN. [Concomitant]
     Active Substance: GABAPENTIN
  8. SPIRONOLACTON [Concomitant]
     Active Substance: SPIRONOLACTONE
  9. OPSUMIT [Suspect]
     Active Substance: MACITENTAN
     Indication: PULMONARY ARTERIAL HYPERTENSION
     Dosage: 10 MG, BID
     Route: 048
     Dates: start: 20150529
  10. TORASEMIDE [Concomitant]
     Active Substance: TORSEMIDE
  11. LISINOPRIL. [Concomitant]
     Active Substance: LISINOPRIL
  12. OMEPRAZOLE. [Concomitant]
     Active Substance: OMEPRAZOLE
  13. ACYCLOVIR. [Concomitant]
     Active Substance: ACYCLOVIR
  14. CELLCEPT [Concomitant]
     Active Substance: MYCOPHENOLATE MOFETIL\MYCOPHENOLATE MOFETIL HYDROCHLORIDE

REACTIONS (4)
  - Malaise [Unknown]
  - Alopecia [Not Recovered/Not Resolved]
  - Product dose omission [Unknown]
  - Palpitations [Unknown]

NARRATIVE: CASE EVENT DATE: 201807
